FAERS Safety Report 11335751 (Version 4)
Quarter: 2015Q4

REPORT INFORMATION
  Report Type: Spontaneous
  Country: US (occurrence: US)
  Receive Date: 20150804
  Receipt Date: 20151029
  Transmission Date: 20160304
  Serious: Yes (Hospitalization, Other)
  Sender: FDA-Public Use
  Company Number: US-UCBSA-2015024183

PATIENT
  Age: 47 Year
  Sex: Female
  Weight: 150 kg

DRUGS (3)
  1. KEPPRA [Suspect]
     Active Substance: LEVETIRACETAM
     Indication: SEIZURE
     Dosage: 2000 MG (500 MG 4 TABLETS), 2X/DAY (BID)
     Route: 048
     Dates: start: 201505, end: 2015
  2. ATIVAN [Concomitant]
     Active Substance: LORAZEPAM
     Indication: ANXIETY
     Dosage: 2 MG, 2X/DAY (BID)
  3. ATIVAN [Concomitant]
     Active Substance: LORAZEPAM
     Indication: SEIZURE

REACTIONS (4)
  - Overdose [Unknown]
  - Off label use [Unknown]
  - Brain neoplasm malignant [Unknown]
  - Seizure [Unknown]

NARRATIVE: CASE EVENT DATE: 201505
